FAERS Safety Report 5145967-1 (Version None)
Quarter: 2006Q4

REPORT INFORMATION
  Report Type: 
  Country: None (occurrence: None)
  Receive Date: 20061108
  Receipt Date: 20061101
  Transmission Date: 20070319
  Serious: Yes (Hospitalization)
  Sender: FDA-Public Use
  Company Number: US-BRISTOL-MYERS SQUIBB COMPANY-13562723

PATIENT
  Age: 50 Year
  Sex: Female
  Weight: 70 kg

DRUGS (3)
  1. CETUXIMAB [Suspect]
     Indication: GASTRIC CANCER
     Route: 042
  2. PACLITAXEL [Suspect]
     Indication: GASTRIC CANCER
     Route: 042
  3. CARBOPLATIN [Suspect]
     Indication: GASTRIC CANCER
     Route: 042

REACTIONS (3)
  - DEHYDRATION [None]
  - NAUSEA [None]
  - VOMITING [None]
